FAERS Safety Report 7933511-2 (Version None)
Quarter: 2011Q4

REPORT INFORMATION
  Report Type: 
  Country: None (occurrence: None)
  Receive Date: 20111118
  Receipt Date: 20111110
  Transmission Date: 20120403
  Serious: Yes (Other)
  Sender: FDA-Public Use
  Company Number: 2011SP053007

PATIENT
  Age: 10 Year
  Sex: Male

DRUGS (2)
  1. SAPHRIS [Suspect]
     Indication: ATTENTION DEFICIT/HYPERACTIVITY DISORDER
     Dosage: 5 MG;QD; PO
     Route: 048
     Dates: start: 20110901, end: 20111107
  2. FOCALIN XR [Concomitant]

REACTIONS (2)
  - FEAR [None]
  - HALLUCINATION [None]
